FAERS Safety Report 9145857 (Version 2)
Quarter: 2013Q2

REPORT INFORMATION
  Report Type: Spontaneous
  Country: PH (occurrence: PH)
  Receive Date: 20130307
  Receipt Date: 20130401
  Transmission Date: 20140414
  Serious: Yes (Death)
  Sender: FDA-Public Use
  Company Number: PH-009507513-1303PHL001499

PATIENT
  Age: 62 Year
  Sex: Female

DRUGS (1)
  1. HYZAAR [Suspect]
     Dosage: 1 DF, QD
     Route: 048

REACTIONS (1)
  - Nephropathy [Fatal]
